FAERS Safety Report 6919022-1 (Version None)
Quarter: 2010Q3

REPORT INFORMATION
  Report Type: 
  Country: None (occurrence: None)
  Receive Date: 20100727
  Receipt Date: 20100707
  Transmission Date: 20110219
  Serious: No
  Sender: FDA-Public Use
  Company Number: 2010-00515

PATIENT
  Sex: Female

DRUGS (2)
  1. ZICAM COLD REMEDY GEL SWABS [Suspect]
     Indication: NASOPHARYNGITIS
     Dosage: AS DIRECTED
     Dates: start: 20070101
  2. ZICAM COLD REMEDY GEL SWABS [Suspect]
     Indication: NASOPHARYNGITIS
     Dosage: AS DIRECTED
     Dates: start: 20080101

REACTIONS (2)
  - AGEUSIA [None]
  - ANOSMIA [None]
